FAERS Safety Report 16488700 (Version 1)
Quarter: 2019Q2

REPORT INFORMATION
  Report Type: Spontaneous
  Country: US (occurrence: US)
  Receive Date: 20190627
  Receipt Date: 20190627
  Transmission Date: 20190711
  Serious: No
  Sender: FDA-Public Use
  Company Number: US-009507513-1906USA010759

PATIENT
  Age: 77 Year
  Sex: Male

DRUGS (8)
  1. TAMSULOSIN HYDROCHLORIDE. [Concomitant]
     Active Substance: TAMSULOSIN HYDROCHLORIDE
  2. LISOPRIL [Concomitant]
     Active Substance: LISINOPRIL
  3. XARELTO [Concomitant]
     Active Substance: RIVAROXABAN
  4. SIMVASTATIN. [Concomitant]
     Active Substance: SIMVASTATIN
  5. CARBOPLATIN. [Concomitant]
     Active Substance: CARBOPLATIN
  6. ALIMTA [Concomitant]
     Active Substance: PEMETREXED DISODIUM
     Dosage: UNK
  7. FINASTERIDE. [Concomitant]
     Active Substance: FINASTERIDE
  8. KEYTRUDA [Suspect]
     Active Substance: PEMBROLIZUMAB
     Indication: LUNG NEOPLASM MALIGNANT
     Dosage: UNK
     Dates: start: 20180208, end: 201905

REACTIONS (2)
  - Rash [Not Recovered/Not Resolved]
  - Rash pruritic [Not Recovered/Not Resolved]

NARRATIVE: CASE EVENT DATE: 201902
